FAERS Safety Report 5532844-7 (Version None)
Quarter: 2007Q4

REPORT INFORMATION
  Report Type: 
  Country: None (occurrence: None)
  Receive Date: 20071120
  Receipt Date: 20070927
  Transmission Date: 20080405
  Serious: No
  Sender: FDA-Public Use
  Company Number: WAES 0709USA04684

PATIENT

DRUGS (4)
  1. JANUVIA [Suspect]
     Dosage: PO
     Route: 048
  2. NEURONTIN [Concomitant]
  3. THERAPY UNSPECIFIED [Concomitant]
  4. INSULIN [Concomitant]

REACTIONS (1)
  - PULMONARY CONGESTION [None]
